FAERS Safety Report 22360980 (Version 2)
Quarter: 2023Q2

REPORT INFORMATION
  Report Type: Spontaneous
  Country: US (occurrence: US)
  Receive Date: 20230524
  Receipt Date: 20230620
  Transmission Date: 20230722
  Serious: No
  Sender: FDA-Public Use
  Company Number: US-BRISTOL-MYERS SQUIBB COMPANY-2023-073079

PATIENT
  Age: 75 Year
  Sex: Female
  Weight: 91.17 kg

DRUGS (1)
  1. POMALYST [Suspect]
     Active Substance: POMALIDOMIDE
     Indication: Plasma cell myeloma
     Dosage: FREQUENCY: 21D ON 7D OFF?3 WEEKS ON 1 WEEK OFF
     Route: 048
     Dates: start: 20230429

REACTIONS (3)
  - Dry skin [Not Recovered/Not Resolved]
  - Fatigue [Unknown]
  - Nausea [Unknown]
